FAERS Safety Report 20871456 (Version 1)
Quarter: 2022Q2

REPORT INFORMATION
  Report Type: Spontaneous
  Country: US (occurrence: None)
  Receive Date: 20220524
  Receipt Date: 20220524
  Transmission Date: 20220721
  Serious: Yes (Other)
  Sender: FDA-Public Use
  Company Number: None

PATIENT
  Age: 61 Year
  Sex: Female
  Weight: 62.1 kg

DRUGS (1)
  1. PAXLOVID [Suspect]
     Active Substance: NIRMATRELVIR\RITONAVIR
     Indication: COVID-19
     Dates: start: 20220509, end: 20220514

REACTIONS (8)
  - Cough [None]
  - Fatigue [None]
  - Oropharyngeal pain [None]
  - Urticaria [None]
  - Disease recurrence [None]
  - Sinus disorder [None]
  - SARS-CoV-2 test positive [None]
  - Burning sensation [None]

NARRATIVE: CASE EVENT DATE: 20220522
